FAERS Safety Report 25842557 (Version 2)
Quarter: 2025Q4

REPORT INFORMATION
  Report Type: Report from Study
  Country: US (occurrence: US)
  Receive Date: 20250924
  Receipt Date: 20251013
  Transmission Date: 20260118
  Serious: Yes (Hospitalization, Other)
  Sender: ABBVIE
  Company Number: US-ABBVIE-6472716

PATIENT
  Age: 68 Year
  Sex: Female
  Weight: 72.574 kg

DRUGS (1)
  1. RINVOQ [Suspect]
     Active Substance: UPADACITINIB
     Indication: Ankylosing spondylitis
     Dosage: FORM STRENGTH: 15 MG
     Route: 048
     Dates: start: 20230522, end: 202509

REACTIONS (4)
  - Neoplasm recurrence [Recovering/Resolving]
  - Dyspnoea [Recovered/Resolved]
  - Cerebral haemorrhage [Recovered/Resolved]
  - Pulmonary thrombosis [Recovered/Resolved]

NARRATIVE: CASE EVENT DATE: 20230101
